FAERS Safety Report 18230968 (Version 3)
Quarter: 2020Q3

REPORT INFORMATION
  Report Type: Spontaneous
  Country: US (occurrence: US)
  Receive Date: 20200904
  Receipt Date: 20200922
  Transmission Date: 20201103
  Serious: No
  Sender: FDA-Public Use
  Company Number: US-JNJFOC-20200905862

PATIENT

DRUGS (1)
  1. IMODIUM A?D [Suspect]
     Active Substance: LOPERAMIDE HYDROCHLORIDE
     Indication: DIARRHOEA
     Dosage: TABLETS/TWICE DAILY OR ONE PUMP/ONCE DAILY
     Route: 065

REACTIONS (3)
  - Product package associated injury [Unknown]
  - Pain in extremity [Unknown]
  - Product blister packaging issue [Unknown]
